FAERS Safety Report 15613605 (Version 1)
Quarter: 2018Q4

REPORT INFORMATION
  Report Type: Spontaneous
  Country: US (occurrence: US)
  Receive Date: 20181113
  Receipt Date: 20181113
  Transmission Date: 20190205
  Serious: Yes (Hospitalization, Other)
  Sender: FDA-Public Use
  Company Number: US-ABBVIE-18K-163-2551766-00

PATIENT
  Age: 37 Year
  Sex: Male

DRUGS (1)
  1. HUMIRA [Suspect]
     Active Substance: ADALIMUMAB
     Indication: PSORIASIS
     Dosage: ON AND OFF
     Route: 058

REACTIONS (6)
  - Hepatic enzyme increased [Unknown]
  - Pustular psoriasis [Unknown]
  - Hepatic failure [Unknown]
  - Infection [Unknown]
  - Psoriasis [Unknown]
  - Cirrhosis alcoholic [Unknown]

NARRATIVE: CASE EVENT DATE: 2015
